FAERS Safety Report 7231174-5 (Version None)
Quarter: 2011Q1

REPORT INFORMATION
  Report Type: 
  Country: None (occurrence: None)
  Receive Date: 20110118
  Receipt Date: 20110114
  Transmission Date: 20110831
  Serious: Yes (Other)
  Sender: FDA-Public Use
  Company Number: A0890545A

PATIENT
  Age: 42 Year
  Sex: Male

DRUGS (2)
  1. ALBUTEROL [Concomitant]
  2. ADVAIR [Suspect]
     Indication: ASTHMA
     Dosage: 1PUFF TWICE PER DAY
     Route: 055
     Dates: start: 20040101

REACTIONS (2)
  - PRODUCT QUALITY ISSUE [None]
  - ASTHMA [None]
